FAERS Safety Report 4340833-3 (Version None)
Quarter: 2004Q2

REPORT INFORMATION
  Report Type: 
  Country: None (occurrence: None)
  Receive Date: 20040419
  Receipt Date: 20031125
  Transmission Date: 20050107
  Serious: No
  Sender: FDA-Public Use
  Company Number: US-GLAXOSMITHKLINE-A0441522A

PATIENT
  Age: 41 Year
  Sex: Female

DRUGS (2)
  1. ESKALITH [Suspect]
     Indication: BIPOLAR DISORDER
     Dosage: 450MG VARIABLE DOSE
     Route: 048
     Dates: start: 19830101, end: 19990101
  2. LITHOBID [Suspect]
     Indication: BIPOLAR DISORDER
     Dosage: 900MG PER DAY
     Route: 065
     Dates: start: 19951101

REACTIONS (1)
  - RENAL IMPAIRMENT [None]
